FAERS Safety Report 25893259 (Version 1)
Quarter: 2025Q4

REPORT INFORMATION
  Report Type: Spontaneous
  Country: CA (occurrence: CA)
  Receive Date: 20251008
  Receipt Date: 20251008
  Transmission Date: 20260117
  Serious: Yes (Other)
  Sender: ROCHE
  Company Number: CA-ROCHE-10000402790

PATIENT
  Age: 36 Year
  Sex: Female

DRUGS (13)
  1. RITUXIMAB [Suspect]
     Active Substance: RITUXIMAB
     Indication: Relapsing-remitting multiple sclerosis
     Route: 042
  2. RITUXIMAB [Suspect]
     Active Substance: RITUXIMAB
     Route: 042
  3. TYSABRI [Concomitant]
     Active Substance: NATALIZUMAB
  4. ZOPICLONE [Concomitant]
     Active Substance: ZOPICLONE
  5. METHYLPREDNISOLONE [Concomitant]
     Active Substance: METHYLPREDNISOLONE
  6. GABAPENTIN [Concomitant]
     Active Substance: GABAPENTIN
  7. DIPHENHYDRAMINE HYDROCHLORIDE [Concomitant]
     Active Substance: DIPHENHYDRAMINE HYDROCHLORIDE
  8. DIHYDROERGOTAMINE MESYLATE [Concomitant]
     Active Substance: DIHYDROERGOTAMINE MESYLATE
  9. CYCLOBENZAPRINE [Concomitant]
     Active Substance: CYCLOBENZAPRINE
  10. BOTOX [Concomitant]
     Active Substance: ONABOTULINUMTOXINA
  11. ATIVAN [Concomitant]
     Active Substance: LORAZEPAM
  12. AMITRIPTYLINE [Concomitant]
     Active Substance: AMITRIPTYLINE
  13. ACETAMINOPHEN [Concomitant]
     Active Substance: ACETAMINOPHEN

REACTIONS (12)
  - Chest discomfort [Recovered/Resolved]
  - Cough [Recovered/Resolved]
  - Ear pruritus [Recovered/Resolved]
  - Fatigue [Recovered/Resolved]
  - Inappropriate schedule of product administration [Unknown]
  - Off label use [Unknown]
  - Pharyngeal hypoaesthesia [Recovered/Resolved]
  - Polyarthritis [Recovered/Resolved]
  - Poor venous access [Recovered/Resolved]
  - Product availability issue [Unknown]
  - Therapy interrupted [Unknown]
  - Throat irritation [Recovered/Resolved]
